FAERS Safety Report 5622624-6 (Version None)
Quarter: 2008Q1

REPORT INFORMATION
  Report Type: 
  Country: None (occurrence: None)
  Receive Date: 20080212
  Receipt Date: 20071228
  Transmission Date: 20080703
  Serious: Yes (Life-Threatening, Hospitalization)
  Sender: FDA-Public Use
  Company Number: JP-BAYER-JP-2007-001412

PATIENT
  Age: 33 Year
  Sex: Female

DRUGS (16)
  1. BETAFERON [Suspect]
     Indication: RELAPSING-REMITTING MULTIPLE SCLEROSIS
     Dosage: TOTAL DAILY DOSE: 4 MIU
     Route: 058
     Dates: start: 20051108, end: 20051110
  2. BETAFERON [Suspect]
     Dosage: TOTAL DAILY DOSE: 8 MIU
     Route: 058
     Dates: start: 20051112, end: 20061015
  3. BETAFERON [Suspect]
     Dosage: AS USED: 8 MIU
     Route: 058
     Dates: start: 20070115
  4. MEDROL [Concomitant]
     Indication: MULTIPLE SCLEROSIS
     Route: 048
     Dates: start: 20051108
  5. ZANTAC [Concomitant]
     Indication: STOMACH DISCOMFORT
     Route: 048
     Dates: start: 20051108, end: 20061026
  6. POLLAKISU [Concomitant]
     Indication: DYSURIA
     Route: 048
     Dates: start: 20051013, end: 20061026
  7. DEPAKENE [Concomitant]
     Indication: MULTIPLE SCLEROSIS
     Route: 048
     Dates: start: 20051108
  8. DEPAKENE [Concomitant]
     Route: 048
     Dates: start: 20051013, end: 20051117
  9. LOXONIN [Concomitant]
     Indication: ARTHRALGIA
     Route: 048
     Dates: start: 20051205
  10. SELBEX [Concomitant]
     Indication: ABDOMINAL PAIN UPPER
     Route: 048
     Dates: start: 20051205, end: 20060921
  11. CYANOCOBALAMIN [Concomitant]
     Indication: MULTIPLE SCLEROSIS
     Route: 048
     Dates: start: 20060309
  12. MOBIC [Concomitant]
     Indication: MULTIPLE SCLEROSIS
     Route: 048
     Dates: start: 20060704, end: 20061026
  13. VOLTAREN [Concomitant]
     Indication: MULTIPLE SCLEROSIS
     Route: 061
     Dates: start: 20060727, end: 20061026
  14. MUCOSTA [Concomitant]
     Indication: GASTROINTESTINAL DISORDER
     Route: 048
     Dates: start: 20070220
  15. DEPAS [Concomitant]
     Indication: ANXIETY
     Route: 048
     Dates: start: 20070806
  16. ALFAROL [Concomitant]
     Indication: OSTEOPOROSIS
     Route: 048
     Dates: start: 20051108, end: 20051119

REACTIONS (10)
  - ARTHRALGIA [None]
  - CONSTIPATION [None]
  - HYPERCHOLESTEROLAEMIA [None]
  - NASOPHARYNGITIS [None]
  - NEUTROPHIL COUNT INCREASED [None]
  - PYREXIA [None]
  - RESIDUAL URINE [None]
  - SEPSIS [None]
  - URINARY TRACT INFECTION [None]
  - WHITE BLOOD CELL COUNT INCREASED [None]
